FAERS Safety Report 4442068-2 (Version None)
Quarter: 2004Q3

REPORT INFORMATION
  Report Type: 
  Country: None (occurrence: None)
  Receive Date: 20040901
  Receipt Date: 20040817
  Transmission Date: 20050211
  Serious: Yes (Hospitalization)
  Sender: FDA-Public Use
  Company Number: STA-AE-04-MTX-369

PATIENT
  Age: 70 Year
  Sex: Female

DRUGS (8)
  1. RHEUMATREX [Suspect]
     Indication: RHEUMATOID ARTHRITIS
     Dosage: SEE IMAGE
     Route: 048
     Dates: start: 20000406, end: 20010207
  2. RHEUMATREX [Suspect]
     Indication: RHEUMATOID ARTHRITIS
     Dosage: SEE IMAGE
     Route: 048
     Dates: start: 20010208, end: 20030305
  3. RHEUMATREX [Suspect]
     Indication: RHEUMATOID ARTHRITIS
     Dosage: SEE IMAGE
     Route: 048
     Dates: start: 20030306, end: 20040601
  4. PREDNISOLONE [Concomitant]
  5. ZYLORIC (ALLOPURINOL) [Concomitant]
  6. AZULFIDINE [Concomitant]
  7. LOXONIN (LOXOPROFEN SODIUM) [Concomitant]
  8. MUCOSTA (REBAMIPIDE) [Concomitant]

REACTIONS (2)
  - DELIRIUM [None]
  - PANCYTOPENIA [None]
